FAERS Safety Report 11911059 (Version 1)
Quarter: 2016Q1

REPORT INFORMATION
  Report Type: Spontaneous
  Country: US (occurrence: None)
  Receive Date: 20160111
  Receipt Date: 20160111
  Transmission Date: 20160526
  Serious: Yes (Other)
  Sender: FDA-Public Use
  Company Number: None

PATIENT
  Age: 52 Year
  Sex: Female
  Weight: 94.35 kg

DRUGS (4)
  1. ALIVE VITAMINS [Concomitant]
  2. OXYTROL [Suspect]
     Active Substance: OXYBUTYNIN
     Indication: HYPERTONIC BLADDER
     Dosage: 1 PATCH Q 4 DAYS
     Dates: start: 20151006, end: 20151010
  3. OXYTROL [Suspect]
     Active Substance: OXYBUTYNIN
     Indication: POLLAKIURIA
     Dosage: 1 PATCH Q 4 DAYS
     Dates: start: 20151006, end: 20151010
  4. LEVOTHROID [Concomitant]
     Active Substance: LEVOTHYROXINE SODIUM

REACTIONS (2)
  - Erythema [None]
  - Dermatitis [None]

NARRATIVE: CASE EVENT DATE: 20151006
